FAERS Safety Report 6185254-6 (Version None)
Quarter: 2009Q2

REPORT INFORMATION
  Report Type: 
  Country: None (occurrence: None)
  Receive Date: 20090511
  Receipt Date: 20090428
  Transmission Date: 20091009
  Serious: Yes (Hospitalization, Disabling, Other)
  Sender: FDA-Public Use
  Company Number: US-ROCHE-416085

PATIENT
  Sex: Female
  Weight: 72.6 kg

DRUGS (1)
  1. ACCUTANE [Suspect]
     Indication: ACNE
     Dosage: DOSE REPORTED AS 40MG/DAY FOR 3 DAYS FOLLOWED BY 80MG/DAY FOR 1 DAY.
     Route: 048
     Dates: start: 19941004, end: 19941107

REACTIONS (32)
  - ABDOMINAL PAIN [None]
  - ANAEMIA [None]
  - BILIARY DYSKINESIA [None]
  - BIPOLAR DISORDER [None]
  - BLOOD CHOLESTEROL INCREASED [None]
  - CHOLECYSTITIS [None]
  - COLITIS [None]
  - COLITIS ISCHAEMIC [None]
  - COLITIS ULCERATIVE [None]
  - EMOTIONAL DISTRESS [None]
  - EPISTAXIS [None]
  - GASTRIC ULCER [None]
  - GASTRITIS [None]
  - GASTROINTESTINAL DISORDER [None]
  - GASTROOESOPHAGEAL REFLUX DISEASE [None]
  - HAEMATOCHEZIA [None]
  - HAEMORRHOIDS [None]
  - HYPOGLYCAEMIA [None]
  - INFLAMMATORY BOWEL DISEASE [None]
  - INFLUENZA [None]
  - INTESTINAL HAEMORRHAGE [None]
  - IRRITABLE BOWEL SYNDROME [None]
  - MOOD SWINGS [None]
  - MULTI-ORGAN DISORDER [None]
  - OVARIAN CYST [None]
  - PANIC ATTACK [None]
  - PREMENSTRUAL SYNDROME [None]
  - SINUSITIS [None]
  - SUICIDAL IDEATION [None]
  - TONSILLITIS [None]
  - VICTIM OF SEXUAL ABUSE [None]
  - VULVOVAGINAL MYCOTIC INFECTION [None]
